FAERS Safety Report 18651003 (Version 3)
Quarter: 2021Q4

REPORT INFORMATION
  Report Type: Report from Study
  Country: US (occurrence: US)
  Receive Date: 20201223
  Receipt Date: 20211006
  Transmission Date: 20220303
  Serious: No
  Sender: FDA-Public Use
  Company Number: NVSC2020US331580

PATIENT
  Age: 74 Year
  Sex: Male

DRUGS (1)
  1. ENTRESTO [Suspect]
     Active Substance: SACUBITRIL\VALSARTAN
     Indication: Cardiac failure congestive
     Dosage: UNK UNK, BID((1/2 TAB IN MORNING AND 1 TAB IN EVENING)
     Route: 048
     Dates: start: 2015

REACTIONS (5)
  - Weight decreased [Recovering/Resolving]
  - Dyspnoea [Unknown]
  - Hypotension [Unknown]
  - Dizziness [Unknown]
  - Wrong technique in product usage process [Not Recovered/Not Resolved]

NARRATIVE: CASE EVENT DATE: 20191201
